FAERS Safety Report 11102550 (Version 1)
Quarter: 2015Q2

REPORT INFORMATION
  Report Type: Spontaneous
  Country: IT (occurrence: IT)
  Receive Date: 20150511
  Receipt Date: 20150511
  Transmission Date: 20150821
  Serious: Yes (Other)
  Sender: FDA-Public Use
  Company Number: IT-TEVA-560563ACC

PATIENT
  Age: 43 Year
  Sex: Female
  Weight: 104 kg

DRUGS (4)
  1. SYCREST - 5 MG COMPRESSA SUBLINGUALE [Concomitant]
     Indication: PRODUCT USED FOR UNKNOWN INDICATION
     Dosage: 3 DF, SUBLINGUAL TABLET
     Route: 048
     Dates: start: 20140422, end: 20141003
  2. CARBOLITHIUM - 300 MG CAPSULE RIGIDE - TEVA ITALIA S.R.L. [Suspect]
     Active Substance: LITHIUM CARBONATE
     Indication: BIPOLAR DISORDER
     Dosage: 4 DOSAGE FORMS DAILY; 4 DF DAILY
     Route: 048
     Dates: start: 20140122, end: 20141003
  3. RIVOTRIL - 2,5MG/ML GOCCE ORALI SOLUZIONE [Concomitant]
     Indication: PRODUCT USED FOR UNKNOWN INDICATION
     Dosage: 60 GTT, ORAL DROPS, SOLUTION
     Route: 048
     Dates: start: 20140122, end: 20141003
  4. NOZINAN - 100 MG COMPRESSE RIVESTITE CON FILM [Concomitant]
     Indication: PRODUCT USED FOR UNKNOWN INDICATION
     Dosage: .5 DF
     Route: 048
     Dates: start: 20140502, end: 20141003

REACTIONS (7)
  - Polyuria [Recovered/Resolved]
  - Hypothyroidism [Recovered/Resolved]
  - Oedema [Recovered/Resolved]
  - Overweight [Recovered/Resolved]
  - Fluid retention [Recovered/Resolved]
  - Nephrogenic diabetes insipidus [Recovered/Resolved]
  - Polydipsia [Recovered/Resolved]

NARRATIVE: CASE EVENT DATE: 20140912
